FAERS Safety Report 12326682 (Version 1)
Quarter: 2016Q2

REPORT INFORMATION
  Report Type: Spontaneous
  Country: US (occurrence: US)
  Receive Date: 20160503
  Receipt Date: 20160503
  Transmission Date: 20160815
  Serious: Yes (Life-Threatening)
  Sender: FDA-Public Use
  Company Number: PHEH2016US010744

PATIENT
  Sex: Male

DRUGS (1)
  1. RITALIN [Suspect]
     Active Substance: METHYLPHENIDATE HYDROCHLORIDE
     Indication: PSYCHOMOTOR HYPERACTIVITY
     Route: 065

REACTIONS (11)
  - Anger [Unknown]
  - Dependence [Unknown]
  - Anxiety [Unknown]
  - Decreased appetite [Unknown]
  - Heart rate abnormal [Unknown]
  - Tonsillitis [Unknown]
  - Retching [Unknown]
  - Malaise [Unknown]
  - Depression [Unknown]
  - Feeling abnormal [Unknown]
  - Weight decreased [Unknown]
